FAERS Safety Report 6447528-0 (Version None)
Quarter: 2009Q4

REPORT INFORMATION
  Report Type: 
  Country: None (occurrence: None)
  Receive Date: 20091119
  Receipt Date: 20090316
  Transmission Date: 20100525
  Serious: Yes (Hospitalization)
  Sender: FDA-Public Use
  Company Number: US-AMGEN-COG338634

PATIENT
  Sex: Female

DRUGS (3)
  1. ENBREL [Suspect]
     Indication: RHEUMATOID ARTHRITIS
     Route: 058
     Dates: start: 20081201
  2. METHOTREXATE [Concomitant]
     Route: 048
  3. SULFASALAZINE [Concomitant]
     Route: 048

REACTIONS (7)
  - ANIMAL BITE [None]
  - COUGH [None]
  - INJECTION SITE HAEMORRHAGE [None]
  - MASS [None]
  - OEDEMA PERIPHERAL [None]
  - OROPHARYNGEAL PAIN [None]
  - PULMONARY EMBOLISM [None]
